FAERS Safety Report 6467286-3 (Version None)
Quarter: 2009Q4

REPORT INFORMATION
  Report Type: 
  Country: None (occurrence: None)
  Receive Date: 20091130
  Receipt Date: 20091113
  Transmission Date: 20100525
  Serious: Yes (Hospitalization)
  Sender: FDA-Public Use
  Company Number: 8054669

PATIENT
  Sex: Male

DRUGS (2)
  1. CIMZIA [Suspect]
     Indication: CROHN'S DISEASE
     Dosage: 400 MG/ M SC
     Route: 058
     Dates: start: 20080601, end: 20080901
  2. CIMZIA [Suspect]
     Indication: CROHN'S DISEASE
     Dosage: 400 MG / SC
     Route: 058
     Dates: start: 20090423

REACTIONS (3)
  - ANAL STENOSIS [None]
  - MUCOUS MEMBRANE DISORDER [None]
  - SINUS DISORDER [None]
